FAERS Safety Report 20236730 (Version 1)
Quarter: 2021Q4

REPORT INFORMATION
  Report Type: Spontaneous
  Country: US (occurrence: None)
  Receive Date: 20211227
  Receipt Date: 20211227
  Transmission Date: 20220303
  Serious: Yes (Life-Threatening, Other)
  Sender: FDA-Public Use
  Company Number: None

PATIENT
  Age: 23 Year
  Sex: Female
  Weight: 58.5 kg

DRUGS (2)
  1. CASIRIVIMAB\IMDEVIMAB [Suspect]
     Active Substance: CASIRIVIMAB\IMDEVIMAB
  2. PROZAC [Concomitant]
     Active Substance: FLUOXETINE HYDROCHLORIDE

REACTIONS (11)
  - Infusion related reaction [None]
  - Feeling hot [None]
  - Dizziness [None]
  - Visual impairment [None]
  - Malaise [None]
  - Loss of consciousness [None]
  - Blood pressure decreased [None]
  - Skin discolouration [None]
  - Erythema [None]
  - Pallor [None]
  - Anaphylactic reaction [None]

NARRATIVE: CASE EVENT DATE: 20211105
